FAERS Safety Report 7278183-8 (Version None)
Quarter: 2011Q1

REPORT INFORMATION
  Report Type: 
  Country: None (occurrence: None)
  Receive Date: 20110207
  Receipt Date: 20110130
  Transmission Date: 20110831
  Serious: Yes (Other)
  Sender: FDA-Public Use
  Company Number: B0691974A

PATIENT
  Age: 70 Year
  Sex: Male

DRUGS (4)
  1. SERETIDE [Suspect]
     Indication: CHRONIC OBSTRUCTIVE PULMONARY DISEASE
     Dosage: 1PUFF TWICE PER DAY
     Route: 055
     Dates: start: 20101214, end: 20101215
  2. SERETIDE [Suspect]
     Dosage: 1PUFF TWICE PER DAY
     Route: 055
     Dates: start: 20101218, end: 20101218
  3. THEOPHYLLINE [Concomitant]
  4. ANTIBIOTIC [Concomitant]

REACTIONS (4)
  - DYSPNOEA [None]
  - EXTRASYSTOLES [None]
  - VENTRICULAR TACHYCARDIA [None]
  - AGITATION [None]
